FAERS Safety Report 24639544 (Version 5)
Quarter: 2025Q1

REPORT INFORMATION
  Report Type: Report from Study
  Country: FI (occurrence: FI)
  Receive Date: 20241119
  Receipt Date: 20250103
  Transmission Date: 20250409
  Serious: Yes (Hospitalization, Other)
  Sender: ABBVIE
  Company Number: FI-ABBVIE-6010094

PATIENT
  Age: 80 Year
  Sex: Female
  Weight: 54 kg

DRUGS (6)
  1. FOSCARBIDOPA\FOSLEVODOPA [Suspect]
     Active Substance: FOSCARBIDOPA\FOSLEVODOPA
     Indication: Parkinson^s disease
     Route: 058
     Dates: start: 202411
  2. FOSCARBIDOPA\FOSLEVODOPA [Suspect]
     Active Substance: FOSCARBIDOPA\FOSLEVODOPA
     Route: 058
     Dates: start: 20240930
  3. FOSCARBIDOPA\FOSLEVODOPA [Suspect]
     Active Substance: FOSCARBIDOPA\FOSLEVODOPA
     Route: 058
     Dates: start: 2024, end: 202411
  4. PANTOPRAZOLE SODIUM [Concomitant]
     Active Substance: PANTOPRAZOLE SODIUM
     Indication: Product used for unknown indication
     Dosage: 20 MILLIGRAM
  5. LOSARTAN [Concomitant]
     Active Substance: LOSARTAN
     Indication: Hypertension
     Dosage: 1 TABLET IN THE MORNING AND EVENING, FORM STRENGTH: 12.5 MILLIGRAM
     Dates: start: 202411
  6. POLYETHYLENE GLYCOL 4000 [Concomitant]
     Active Substance: POLYETHYLENE GLYCOL 4000
     Indication: Faeces hard
     Dosage: 1 SACHET TWICE A DAY, FORM STRENGTH: 12 GRAM

REACTIONS (11)
  - Upper limb fracture [Not Recovered/Not Resolved]
  - Confusional state [Not Recovered/Not Resolved]
  - Intentional product use issue [Recovered/Resolved]
  - Fall [Not Recovered/Not Resolved]
  - Dyspnoea [Unknown]
  - Syncope [Recovered/Resolved]
  - Vertigo [Unknown]
  - Catheter site bruise [Recovering/Resolving]
  - Loss of consciousness [Recovered/Resolved]
  - Blood pressure systolic increased [Unknown]
  - Device loosening [Unknown]

NARRATIVE: CASE EVENT DATE: 20240101
